FAERS Safety Report 15548395 (Version 3)
Quarter: 2018Q4

REPORT INFORMATION
  Report Type: Spontaneous
  Country: US (occurrence: US)
  Receive Date: 20181024
  Receipt Date: 20181125
  Transmission Date: 20190205
  Serious: No
  Sender: FDA-Public Use
  Company Number: US-UNITED THERAPEUTICS-UNT-2018-016450

PATIENT
  Age: 72 Year
  Sex: Female
  Weight: 90.7 kg

DRUGS (5)
  1. ADEMPAS [Concomitant]
     Active Substance: RIOCIGUAT
     Indication: PRODUCT USED FOR UNKNOWN INDICATION
     Dosage: UNK
     Route: 065
  2. TRACLEER [Concomitant]
     Active Substance: BOSENTAN
     Indication: PRODUCT USED FOR UNKNOWN INDICATION
     Dosage: UNK
     Route: 065
  3. REMODULIN [Suspect]
     Active Substance: TREPROSTINIL
     Indication: PULMONARY HYPERTENSION
     Dosage: 0.002 ?G/KG, CONTINUING
     Route: 058
     Dates: start: 20181003
  4. COZAAR [Concomitant]
     Active Substance: LOSARTAN POTASSIUM
     Indication: PRODUCT USED FOR UNKNOWN INDICATION
     Dosage: UNK
     Route: 065
  5. REMODULIN [Suspect]
     Active Substance: TREPROSTINIL
     Indication: PULMONARY ARTERIAL HYPERTENSION
     Dosage: 0.028 ?G/KG, CONTINUING
     Route: 058

REACTIONS (11)
  - Headache [Unknown]
  - Dyspnoea [Unknown]
  - Flushing [Unknown]
  - Rash macular [Not Recovered/Not Resolved]
  - Diarrhoea [Unknown]
  - Urticaria [Not Recovered/Not Resolved]
  - Heart rate increased [Unknown]
  - Palpitations [Unknown]
  - Nasopharyngitis [Unknown]
  - Infusion site necrosis [Unknown]
  - Oedema peripheral [Unknown]

NARRATIVE: CASE EVENT DATE: 2018
